FAERS Safety Report 9444552 (Version 1)
Quarter: 2013Q3

REPORT INFORMATION
  Report Type: Spontaneous
  Country: US (occurrence: None)
  Receive Date: 20130806
  Receipt Date: 20130806
  Transmission Date: 20140515
  Serious: Yes (Life-Threatening, Disabling)
  Sender: FDA-Public Use
  Company Number: None

PATIENT
  Age: 49 Year
  Sex: Male
  Weight: 71.22 kg

DRUGS (1)
  1. FORTEO [Suspect]
     Dosage: 20MCG INJECTION ONCE DAILY GIVEN INTO/UNDER THE SKIN
     Route: 058

REACTIONS (7)
  - Speech disorder [None]
  - Muscular weakness [None]
  - Fall [None]
  - Dizziness [None]
  - Change of bowel habit [None]
  - Amyotrophic lateral sclerosis [None]
  - Multiple sclerosis [None]
